FAERS Safety Report 21639723 (Version 2)
Quarter: 2023Q1

REPORT INFORMATION
  Report Type: Spontaneous
  Country: US (occurrence: US)
  Receive Date: 20221124
  Receipt Date: 20230127
  Transmission Date: 20230418
  Serious: Yes (Other)
  Sender: FDA-Public Use
  Company Number: US-BRISTOL-MYERS SQUIBB COMPANY-2022-142746

PATIENT
  Age: 83 Year
  Sex: Female
  Weight: 61.23 kg

DRUGS (1)
  1. REVLIMID [Suspect]
     Active Substance: LENALIDOMIDE
     Indication: Plasma cell myeloma
     Dosage: FREQ: DAILY 21 ON 7 OFF/ 3 W, 1 W OFF
     Route: 048

REACTIONS (3)
  - COVID-19 [Unknown]
  - Diverticulitis [Unknown]
  - Fatigue [Unknown]
